FAERS Safety Report 24706342 (Version 1)
Quarter: 2024Q4

REPORT INFORMATION
  Report Type: Spontaneous
  Country: US (occurrence: None)
  Receive Date: 20241206
  Receipt Date: 20241206
  Transmission Date: 20250114
  Serious: No
  Sender: Public
  Company Number: None

PATIENT
  Age: 86 Year
  Sex: Female
  Weight: 63.05 kg

DRUGS (1)
  1. SIMPONI ARIA [Suspect]
     Active Substance: GOLIMUMAB
     Indication: Osteoarthritis
     Dosage: INFUSION 116MG INTRAVENOUSLY OVER 30 MINUTES EVERY 8 WEEKS AS DIRCTD
     Route: 058
     Dates: start: 202307

REACTIONS (3)
  - Kidney infection [None]
  - Ear operation [None]
  - Weight increased [None]
